FAERS Safety Report 4554369-8 (Version None)
Quarter: 2004Q4

REPORT INFORMATION
  Report Type: 
  Country: None (occurrence: None)
  Receive Date: 20041222
  Receipt Date: 20041122
  Transmission Date: 20050328
  Serious: No
  Sender: FDA-Public Use
  Company Number: 210643

PATIENT
  Age: 56 Year
  Sex: Male

DRUGS (1)
  1. AVASTIN [Suspect]
     Indication: RENAL CELL CARCINOMA STAGE UNSPECIFIED
     Dosage: 800 MG Q3W INTRAVENOUS
     Route: 042
     Dates: start: 20041008

REACTIONS (2)
  - DIARRHOEA [None]
  - PANCREATIC INSUFFICIENCY [None]
